FAERS Safety Report 12287255 (Version 3)
Quarter: 2016Q2

REPORT INFORMATION
  Report Type: Spontaneous
  Country: US (occurrence: US)
  Receive Date: 20160420
  Receipt Date: 20160429
  Transmission Date: 20160815
  Serious: Yes (Hospitalization, Other)
  Sender: FDA-Public Use
  Company Number: US-ALEXION-A201602729

PATIENT
  Age: 28 Year
  Sex: Male

DRUGS (1)
  1. SOLIRIS [Suspect]
     Active Substance: ECULIZUMAB
     Indication: HAEMOLYTIC URAEMIC SYNDROME
     Dosage: 1200 MG, Q2W
     Route: 042
     Dates: start: 20130622, end: 20160407

REACTIONS (10)
  - Sepsis [Not Recovered/Not Resolved]
  - Dysphagia [Unknown]
  - Oropharyngeal pain [Unknown]
  - Malaise [Unknown]
  - Pneumonia [Not Recovered/Not Resolved]
  - Pyrexia [Unknown]
  - Vomiting [Unknown]
  - Tonsillitis [Unknown]
  - Dehydration [Unknown]
  - Pharyngeal erythema [Unknown]

NARRATIVE: CASE EVENT DATE: 20160408
